FAERS Safety Report 12544463 (Version 1)
Quarter: 2016Q3

REPORT INFORMATION
  Report Type: Spontaneous
  Country: US (occurrence: US)
  Receive Date: 20160711
  Receipt Date: 20160711
  Transmission Date: 20161109
  Serious: Yes (Other)
  Sender: FDA-Public Use
  Company Number: US-PFIZER INC-2016332280

PATIENT
  Sex: Male

DRUGS (1)
  1. ZOLOFT [Suspect]
     Active Substance: SERTRALINE HYDROCHLORIDE
     Dosage: UNK

REACTIONS (21)
  - Visual impairment [Unknown]
  - Urinary incontinence [Unknown]
  - Diarrhoea [Unknown]
  - Penis disorder [Unknown]
  - Penile burning sensation [Unknown]
  - Constipation [Unknown]
  - Abdominal pain [Unknown]
  - Hypoaesthesia [Unknown]
  - Nausea [Unknown]
  - Headache [Unknown]
  - Nervousness [Unknown]
  - Vision blurred [Unknown]
  - Abdominal pain upper [Unknown]
  - Pollakiuria [Unknown]
  - Abdominal distension [Unknown]
  - Paraesthesia [Unknown]
  - Vomiting [Unknown]
  - Agitation [Unknown]
  - Urinary retention [Unknown]
  - Urine abnormality [Unknown]
  - Dry mouth [Unknown]
